FAERS Safety Report 13346122 (Version 1)
Quarter: 2017Q1

REPORT INFORMATION
  Report Type: Spontaneous
  Country: US (occurrence: US)
  Receive Date: 20170317
  Receipt Date: 20170317
  Transmission Date: 20170428
  Serious: Yes (Disabling)
  Sender: FDA-Public Use
  Company Number: None

PATIENT
  Age: 64 Year
  Sex: Female
  Weight: 77.85 kg

DRUGS (13)
  1. COUMADIN [Concomitant]
     Active Substance: WARFARIN SODIUM
  2. NEURONTIN [Concomitant]
     Active Substance: GABAPENTIN
  3. AMBIEN [Concomitant]
     Active Substance: ZOLPIDEM TARTRATE
  4. LIPITOR [Concomitant]
     Active Substance: ATORVASTATIN CALCIUM
  5. IMITREX [Concomitant]
     Active Substance: SUMATRIPTAN SUCCINATE
  6. CRANBERRY EXTRACT CAPSULE [Concomitant]
  7. BIOTIN [Concomitant]
     Active Substance: BIOTIN
  8. LUNESTA [Concomitant]
     Active Substance: ESZOPICLONE
  9. PROBIOTIC [Concomitant]
     Active Substance: PROBIOTICS NOS
  10. CIPRO [Suspect]
     Active Substance: CIPROFLOXACIN HYDROCHLORIDE
     Indication: URINARY TRACT INFECTION
     Dosage: ?          QUANTITY:14 TABLET(S);?
     Route: 048
     Dates: start: 20170207, end: 20170208
  11. TOPROL XL [Concomitant]
     Active Substance: METOPROLOL SUCCINATE
  12. MULTI VITAMIN [Concomitant]
     Active Substance: VITAMINS
  13. FIBER CAPSULES [Concomitant]

REACTIONS (6)
  - Feeling abnormal [None]
  - Tremor [None]
  - Tendonitis [None]
  - Paraesthesia [None]
  - Hypoaesthesia [None]
  - Myalgia [None]

NARRATIVE: CASE EVENT DATE: 20170207
